FAERS Safety Report 18328969 (Version 2)
Quarter: 2022Q2

REPORT INFORMATION
  Report Type: Spontaneous
  Country: BR (occurrence: BR)
  Receive Date: 20200930
  Receipt Date: 20220628
  Transmission Date: 20220721
  Serious: Yes (Death, Other)
  Sender: FDA-Public Use
  Company Number: BR-GLAXOSMITHKLINE-BR2020AMR192342

PATIENT

DRUGS (3)
  1. SERETIDE [Suspect]
     Active Substance: FLUTICASONE PROPIONATE\SALMETEROL XINAFOATE
     Indication: Respiratory disorder
     Dosage: UNK, BID, ONCE IN THE MORNING AND ONCE AT NIGHT
     Dates: start: 2017
  2. RISPERIDONE [Suspect]
     Active Substance: RISPERIDONE
     Indication: Myasthenia gravis
     Dosage: UNK
  3. MESTINON [Suspect]
     Active Substance: PYRIDOSTIGMINE BROMIDE
     Indication: Myasthenia gravis
     Dosage: 5 DF( TABLETS)

REACTIONS (7)
  - Acute respiratory failure [Fatal]
  - Lip and/or oral cavity cancer stage I [Fatal]
  - Lung neoplasm [Fatal]
  - Myasthenia gravis [Fatal]
  - Nervous system disorder [Unknown]
  - Drug effective for unapproved indication [Unknown]
  - Product use in unapproved indication [Unknown]

NARRATIVE: CASE EVENT DATE: 20190101
